FAERS Safety Report 5081646-7 (Version None)
Quarter: 2006Q3

REPORT INFORMATION
  Report Type: 
  Country: None (occurrence: None)
  Receive Date: 20060811
  Receipt Date: 20060801
  Transmission Date: 20061208
  Serious: Yes (Hospitalization, Other)
  Sender: FDA-Public Use
  Company Number: 2006AL002020

PATIENT
  Age: 72 Year
  Sex: Male

DRUGS (4)
  1. RIFAMPIN [Suspect]
     Indication: TUBERCULOUS PLEURISY
     Dosage: PO
     Route: 048
     Dates: start: 20050415, end: 20050501
  2. ISCOTIN [Concomitant]
  3. ETHAMBUTOL HYDROCHLORIDE [Concomitant]
  4. PYRAZINAMIDE [Concomitant]

REACTIONS (4)
  - HYPOALBUMINAEMIA [None]
  - NEPHRITIS INTERSTITIAL [None]
  - NEPHROTIC SYNDROME [None]
  - RENAL FAILURE ACUTE [None]
